FAERS Safety Report 19593452 (Version 1)
Quarter: 2021Q3

REPORT INFORMATION
  Report Type: Spontaneous
  Country: US (occurrence: US)
  Receive Date: 20210722
  Receipt Date: 20210722
  Transmission Date: 20211014
  Serious: No
  Sender: FDA-Public Use
  Company Number: US-AIMMUNE THERAPEUTICS, INC.-2021AIMT00438

PATIENT

DRUGS (2)
  1. PALFORZIA [Suspect]
     Active Substance: PEANUT
     Dosage: UNK UNK, ONCE,LAST DOSE OF PALFORZIA PRIOR TO EVENT ONSET
     Route: 048
     Dates: start: 20210419, end: 20210419
  2. PALFORZIA [Suspect]
     Active Substance: PEANUT
     Indication: FOOD ALLERGY
     Dosage: UNK UNK, 1X/DAY
     Route: 048

REACTIONS (4)
  - Viral diarrhoea [Unknown]
  - Hypoglycaemia [Unknown]
  - Dehydration [Unknown]
  - Gastroenteritis viral [Unknown]

NARRATIVE: CASE EVENT DATE: 20210420
